FAERS Safety Report 9922177 (Version 1)
Quarter: 2014Q1

REPORT INFORMATION
  Report Type: Spontaneous
  Country: CA (occurrence: CA)
  Receive Date: 20140225
  Receipt Date: 20140225
  Transmission Date: 20141002
  Serious: Yes (Death)
  Sender: FDA-Public Use
  Company Number: CA-PFIZER INC-2014052376

PATIENT
  Age: 47 Year
  Sex: Female

DRUGS (5)
  1. MORPHINE SULFATE [Suspect]
     Dosage: UNK
  2. DIAZEPAM [Suspect]
     Dosage: UNK
  3. CODEINE [Suspect]
     Dosage: UNK
  4. PAROXETINE [Suspect]
     Dosage: UNK
  5. ZOPLICONE [Suspect]
     Dosage: UNK

REACTIONS (5)
  - Pneumonia aspiration [Fatal]
  - Accidental overdose [Fatal]
  - Drug dependence [Fatal]
  - Substance abuse [Fatal]
  - Drug withdrawal syndrome [Fatal]
